FAERS Safety Report 15417017 (Version 1)
Quarter: 2018Q3

REPORT INFORMATION
  Report Type: Spontaneous
  Country: ES (occurrence: ES)
  Receive Date: 20180924
  Receipt Date: 20180924
  Transmission Date: 20181010
  Serious: Yes (Other)
  Sender: FDA-Public Use
  Company Number: ES-SUN PHARMACEUTICAL INDUSTRIES LTD-2018RR-185079

PATIENT
  Age: 74 Year
  Sex: Female
  Weight: 75 kg

DRUGS (4)
  1. PARACETAMOL [Suspect]
     Active Substance: ACETAMINOPHEN
     Indication: PAIN
     Dosage: 1000 MG, TID
     Route: 048
     Dates: start: 20180401, end: 20180502
  2. FASLODEX INYECTABLE [Concomitant]
     Indication: BREAST CANCER
     Route: 051
     Dates: start: 20180403
  3. ESCITALOPRAM 20 MG 28 COMPRIMIDOS [Concomitant]
     Indication: DEPRESSION
     Dosage: 20 MG, QD
     Route: 048
     Dates: start: 20180101
  4. METAMIZOL 575 MG 20 CAPSULAS [Concomitant]
     Indication: PAIN
     Dosage: 575 MG, TID
     Route: 048
     Dates: start: 20180201

REACTIONS (1)
  - Conjunctival haemorrhage [Recovered/Resolved]

NARRATIVE: CASE EVENT DATE: 20180423
